FAERS Safety Report 9698194 (Version 2)
Quarter: 2013Q4

REPORT INFORMATION
  Report Type: Spontaneous
  Country: US (occurrence: None)
  Receive Date: 20131115
  Receipt Date: 20131212
  Transmission Date: 20140711
  Serious: Yes (Other)
  Sender: FDA-Public Use
  Company Number: 2013-US-002867

PATIENT
  Age: 33 Year
  Sex: Female
  Weight: 122.4 kg

DRUGS (4)
  1. XYREM (SODIUM OXYBATE) ORAL SOLUTION, 500MG/ML [Suspect]
     Indication: NARCOLEPSY
     Dosage: 2.25 G, BID, ORAL
     Route: 048
     Dates: start: 200702
  2. XYREM (SODIUM OXYBATE) ORAL SOLUTION, 500MG/ML [Suspect]
     Indication: CATAPLEXY
     Dosage: 2.25 G, BID, ORAL
     Route: 048
     Dates: start: 200702
  3. DEPOPROVERA (MEDROXYPROGRESTERONE ACETATE) [Concomitant]
  4. NUVIGIL (ARMODAFINIL) [Concomitant]

REACTIONS (2)
  - Type 2 diabetes mellitus [None]
  - Treatment noncompliance [None]
